FAERS Safety Report 6521823-9 (Version None)
Quarter: 2009Q4

REPORT INFORMATION
  Report Type: 
  Country: None (occurrence: None)
  Receive Date: 20091222
  Receipt Date: 20091209
  Transmission Date: 20100525
  Serious: Yes (Other)
  Sender: FDA-Public Use
  Company Number: TRP_06651_2009

PATIENT
  Sex: Male

DRUGS (3)
  1. RIBAVARIN [Suspect]
     Indication: HEPATITIS C
     Dosage: (DF ORAL)
     Route: 048
     Dates: start: 20090914
  2. PEG-INTRON [Suspect]
     Indication: HEPATITIS C
     Dosage: (DF SUBCUTANEOUS)
     Route: 058
     Dates: start: 20090914
  3. CELEXA [Concomitant]

REACTIONS (17)
  - ABNORMAL BEHAVIOUR [None]
  - AGITATION [None]
  - ANGER [None]
  - CONDITION AGGRAVATED [None]
  - CONSTIPATION [None]
  - DIARRHOEA [None]
  - FATIGUE [None]
  - FEELING ABNORMAL [None]
  - INCREASED TENDENCY TO BRUISE [None]
  - LABORATORY TEST ABNORMAL [None]
  - MALAISE [None]
  - MIGRAINE [None]
  - MUSCLE SPASMS [None]
  - PAIN [None]
  - RENAL FAILURE [None]
  - RENAL PAIN [None]
  - VOMITING [None]
